FAERS Safety Report 5939254-9 (Version None)
Quarter: 2008Q4

REPORT INFORMATION
  Report Type: 
  Country: None (occurrence: None)
  Receive Date: 20081103
  Receipt Date: 20081023
  Transmission Date: 20090506
  Serious: Yes (Death)
  Sender: FDA-Public Use
  Company Number: US-JNJCH-2008053258

PATIENT
  Age: 3 Month
  Sex: Female

DRUGS (3)
  1. DIPHENHYDRAMINE HCL [Suspect]
     Indication: UPPER RESPIRATORY TRACT INFECTION
     Dosage: TEXT:UNSPECIFIED
     Route: 048
  2. DEXTROMETHORPHAN [Suspect]
     Indication: UPPER RESPIRATORY TRACT INFECTION
     Dosage: TEXT:UNSPECIFIED
     Route: 048
  3. ATROPINE [Suspect]
     Indication: UPPER RESPIRATORY TRACT INFECTION
     Dosage: TEXT:UNSPECIFIED
     Route: 065

REACTIONS (2)
  - DRUG TOXICITY [None]
  - WRONG DRUG ADMINISTERED [None]
